FAERS Safety Report 23179178 (Version 1)
Quarter: 2023Q4

REPORT INFORMATION
  Report Type: Spontaneous
  Country: CN (occurrence: CN)
  Receive Date: 20231113
  Receipt Date: 20231113
  Transmission Date: 20240109
  Serious: Yes (Hospitalization)
  Sender: FDA-Public Use
  Company Number: CN-NOVOPROD-1136315

PATIENT
  Age: 60 Year
  Sex: Male
  Weight: 84 kg

DRUGS (2)
  1. INSULIN ASPART [Suspect]
     Active Substance: INSULIN ASPART
     Dosage: 30 IU, QD (10 U IN THE MORNING, 6 U AT NOON, 14 U IN THE EVENING, AFTER ADMISSION)
     Route: 058
  2. INSULIN ASPART [Suspect]
     Active Substance: INSULIN ASPART
     Indication: Type 2 diabetes mellitus
     Dosage: 28 IU, QD (10 U IN THE MORNING, 6 U AT NOON, 12 U IN THE EVENING)
     Route: 058

REACTIONS (1)
  - Insulin autoimmune syndrome [Unknown]
